FAERS Safety Report 8615412-X (Version None)
Quarter: 2012Q3

REPORT INFORMATION
  Report Type: 
  Country: None (occurrence: None)
  Receive Date: 20120823
  Receipt Date: 20120815
  Transmission Date: 20120928
  Serious: Yes (Death, Hospitalization)
  Sender: FDA-Public Use
  Company Number: GB-EISAI INC-E7389-02693-SPO-GB

PATIENT
  Age: 45 Year
  Sex: Female
  Weight: 86 kg

DRUGS (6)
  1. MORPHINE SULFATE [Concomitant]
     Indication: COUGH
  2. DEXAMETHASONE [Concomitant]
     Indication: PREMEDICATION
     Dosage: 8 MG PRE-CHEMO
     Route: 042
  3. DEXAMETHASONE [Concomitant]
     Dosage: 2 MG DAILY MAINTENANCE
     Route: 042
  4. ONDANSETRON [Concomitant]
     Indication: PREMEDICATION
     Route: 042
  5. HALAVEN [Suspect]
     Route: 041
     Dates: start: 20120614, end: 20120621
  6. MORPHINE SULFATE [Concomitant]
     Indication: PAIN

REACTIONS (6)
  - YELLOW SKIN [None]
  - EPISTAXIS [None]
  - DYSPNOEA [None]
  - PALLOR [None]
  - FATIGUE [None]
  - PLATELET COUNT DECREASED [None]
